FAERS Safety Report 6683535-0 (Version None)
Quarter: 2010Q2

REPORT INFORMATION
  Report Type: 
  Country: None (occurrence: None)
  Receive Date: 20100413
  Receipt Date: 20100408
  Transmission Date: 20101027
  Serious: Yes (Hospitalization)
  Sender: FDA-Public Use
  Company Number: SPV1-2010-00495

PATIENT
  Age: 36 Year
  Sex: Male

DRUGS (5)
  1. FOSRENOL [Suspect]
     Indication: HYPERPHOSPHATAEMIA
     Dosage: 750 MG TOTAL DAIL DOSE, ORAL
     Route: 048
     Dates: start: 20090507, end: 20100315
  2. CANDESARTAN CILEXETIL [Concomitant]
  3. AMLODIPINE BESYLATE [Concomitant]
  4. CALCIUM CARBONATE [Concomitant]
  5. NESP (DARBEPOETIN ALFA) [Concomitant]

REACTIONS (6)
  - CALCINOSIS [None]
  - DIVERTICULUM [None]
  - ILEUS [None]
  - MEDICATION RESIDUE [None]
  - WRONG TECHNIQUE IN DRUG USAGE PROCESS [None]
  - X-RAY GASTROINTESTINAL TRACT ABNORMAL [None]
